FAERS Safety Report 6919983-0 (Version None)
Quarter: 2010Q3

REPORT INFORMATION
  Report Type: 
  Country: None (occurrence: None)
  Receive Date: 20100811
  Receipt Date: 20100803
  Transmission Date: 20110219
  Serious: Yes (Life-Threatening, Hospitalization)
  Sender: FDA-Public Use
  Company Number: CA-ROCHE-719750

PATIENT
  Age: 59 Year
  Sex: Male

DRUGS (2)
  1. ACTEMRA [Suspect]
     Indication: RHEUMATOID ARTHRITIS
     Route: 042
     Dates: start: 20100611
  2. ACTEMRA [Suspect]
     Route: 042
     Dates: start: 20100804

REACTIONS (1)
  - MYOCARDIAL INFARCTION [None]
